FAERS Safety Report 6177151-7 (Version None)
Quarter: 2009Q2

REPORT INFORMATION
  Report Type: 
  Country: None (occurrence: None)
  Receive Date: 20090504
  Receipt Date: 20090419
  Transmission Date: 20091009
  Serious: Yes (Other)
  Sender: FDA-Public Use
  Company Number: US-PFIZER INC-2009202653

PATIENT
  Sex: Male
  Weight: 104.31 kg

DRUGS (3)
  1. CHANTIX [Suspect]
     Dosage: 0.5 MG, 1X/DAY
     Route: 048
     Dates: start: 20090413
  2. CYMBALTA [Concomitant]
     Dosage: 30 MG, 1X/DAY
  3. KLONOPIN [Concomitant]
     Dosage: 1 MG, 2X/DAY

REACTIONS (2)
  - PARANOIA [None]
  - PNEUMONIA [None]
